FAERS Safety Report 4838322-2 (Version None)
Quarter: 2005Q4

REPORT INFORMATION
  Report Type: 
  Country: None (occurrence: None)
  Receive Date: 20051123
  Receipt Date: 20051114
  Transmission Date: 20060501
  Serious: Yes (Hospitalization)
  Sender: FDA-Public Use
  Company Number: 12867

PATIENT
  Age: 48 Year
  Sex: Female

DRUGS (4)
  1. METHOTREXATE [Suspect]
  2. ENBREL [Suspect]
     Dosage: 25 MG BID
     Dates: start: 20041001, end: 20050101
  3. DICLOFENAC [Concomitant]
  4. PREDNISOLONE [Concomitant]

REACTIONS (2)
  - JOINT SWELLING [None]
  - PULMONARY EMBOLISM [None]
